FAERS Safety Report 12432955 (Version 3)
Quarter: 2017Q4

REPORT INFORMATION
  Report Type: Spontaneous
  Country: US (occurrence: US)
  Receive Date: 20160603
  Receipt Date: 20171011
  Transmission Date: 20180320
  Serious: Yes (Hospitalization)
  Sender: FDA-Public Use
  Company Number: US-DSJP-DSU-2015-121237

PATIENT

DRUGS (13)
  1. BENICAR HCT [Suspect]
     Active Substance: HYDROCHLOROTHIAZIDE\OLMESARTAN MEDOXOMIL
     Indication: HYPERTENSION
     Dosage: 40/25MG, QD
     Dates: start: 201410, end: 201504
  2. OXYCODONE [Concomitant]
     Active Substance: OXYCODONE
     Dosage: 10 MG, QID
  3. BENICAR [Suspect]
     Active Substance: OLMESARTAN MEDOXOMIL
     Indication: HYPERTENSION
     Dosage: 40 MG, QD
     Route: 048
     Dates: start: 200406, end: 201410
  4. BENICAR [Suspect]
     Active Substance: OLMESARTAN MEDOXOMIL
     Dosage: 20 MG, QD
  5. OXYCODONE [Concomitant]
     Active Substance: OXYCODONE
     Indication: ABDOMINAL PAIN
     Dosage: 20 MG, QID
     Route: 048
  6. AVANAFIL [Concomitant]
     Active Substance: AVANAFIL
     Indication: PRODUCT USED FOR UNKNOWN INDICATION
     Dosage: UNK
  7. HYDROCODONE [Concomitant]
     Active Substance: HYDROCODONE
     Indication: PRODUCT USED FOR UNKNOWN INDICATION
     Dosage: UNK
  8. KRILL OIL [Concomitant]
     Active Substance: DIETARY SUPPLEMENT
     Indication: PRODUCT USED FOR UNKNOWN INDICATION
     Dosage: 500 MG, QD
     Route: 048
  9. CIALIS [Concomitant]
     Active Substance: TADALAFIL
     Indication: PRODUCT USED FOR UNKNOWN INDICATION
     Dosage: 10 MG, UNK
  10. AZOR [Suspect]
     Active Substance: AMLODIPINE BESYLATE\OLMESARTAN MEDOXOMIL
     Indication: HYPERTENSION
     Dosage: 5/40MG, QD
     Dates: start: 20110815
  11. CIALIS [Concomitant]
     Active Substance: TADALAFIL
     Dosage: 20 MG, UNK
  12. POTASSIUM [Concomitant]
     Active Substance: POTASSIUM
     Indication: PRODUCT USED FOR UNKNOWN INDICATION
     Dosage: UNK
  13. PERCOCET                           /00446701/ [Suspect]
     Active Substance: ACETAMINOPHEN\OXYCODONE HYDROCHLORIDE\OXYCODONE TEREPHTHALATE
     Indication: ABDOMINAL PAIN
     Dosage: 5/325MG, QID
     Dates: start: 20080403, end: 20080422

REACTIONS (9)
  - Gastric ulcer [Unknown]
  - Constipation [Not Recovered/Not Resolved]
  - Gastrooesophageal reflux disease [Unknown]
  - Erectile dysfunction [Not Recovered/Not Resolved]
  - Clostridium difficile colitis [Recovered/Resolved]
  - Haemorrhoids [Not Recovered/Not Resolved]
  - Malabsorption [Not Recovered/Not Resolved]
  - Diverticulum [Unknown]
  - Acute kidney injury [Recovering/Resolving]

NARRATIVE: CASE EVENT DATE: 2004
